FAERS Safety Report 8419148-X (Version None)
Quarter: 2012Q2

REPORT INFORMATION
  Report Type: 
  Country: None (occurrence: None)
  Receive Date: 20120607
  Receipt Date: 20120531
  Transmission Date: 20120825
  Serious: Yes (Hospitalization)
  Sender: FDA-Public Use
  Company Number: ES-BMSGILMSD-2012-0055888

PATIENT
  Age: 38 Year
  Sex: Male

DRUGS (5)
  1. ZOLPIDEM [Concomitant]
     Dosage: 10 MG, UNK
  2. ESERTIA [Concomitant]
     Dosage: 10 MG, UNK
  3. LORAZEPAM [Concomitant]
     Dosage: 1 MG, UNK
  4. SEPTRA [Suspect]
     Indication: ANTIFUNGAL PROPHYLAXIS
     Dosage: 4 DF, Q1WK
     Route: 048
     Dates: start: 20110519
  5. ATRIPLA [Suspect]
     Indication: HIV INFECTION
     Route: 048
     Dates: start: 20110526, end: 20110611

REACTIONS (4)
  - DIARRHOEA [None]
  - PYREXIA [None]
  - GENERALISED ERYTHEMA [None]
  - MALAISE [None]
